FAERS Safety Report 10594351 (Version 1)
Quarter: 2014Q4

REPORT INFORMATION
  Report Type: Spontaneous
  Country: TR (occurrence: TR)
  Receive Date: 20141119
  Receipt Date: 20141119
  Transmission Date: 20150529
  Serious: Yes (Other)
  Sender: FDA-Public Use
  Company Number: ALCN2014TR006407

PATIENT
  Age: 57 Year
  Sex: Female

DRUGS (6)
  1. MOXIFLOXACIN [Suspect]
     Active Substance: MOXIFLOXACIN
     Indication: POSTOPERATIVE CARE
     Dosage: 0.1 ML, ONCE/SINGLE
     Route: 065
  2. PREDNISOLONE. [Suspect]
     Active Substance: PREDNISOLONE
     Indication: POSTOPERATIVE CARE
     Dosage: 1 DF, QID
     Route: 047
  3. OFLOXACIN. [Suspect]
     Active Substance: OFLOXACIN
     Indication: POSTOPERATIVE CARE
     Dosage: 1 DF, QID
     Route: 047
  4. TROPAMID [Suspect]
     Active Substance: TROPICAMIDE
     Indication: PUPIL DILATION PROCEDURE
     Dosage: UNK
     Route: 047
  5. MARCAINE [Suspect]
     Active Substance: BUPIVACAINE HYDROCHLORIDE
     Indication: ANAESTHESIA
     Dosage: 2 ML, ONCE/SINGLE
     Route: 047
  6. MYDFRIN [Suspect]
     Active Substance: PHENYLEPHRINE HYDROCHLORIDE
     Indication: PUPIL DILATION PROCEDURE
     Dosage: UNK
     Route: 047

REACTIONS (4)
  - Off label use [Unknown]
  - Visual impairment [Recovered/Resolved]
  - Toxic anterior segment syndrome [Unknown]
  - Ocular hyperaemia [Recovered/Resolved]
